FAERS Safety Report 4312561-1 (Version None)
Quarter: 2004Q1

REPORT INFORMATION
  Report Type: 
  Country: None (occurrence: None)
  Receive Date: 20040302
  Receipt Date: 20031231
  Transmission Date: 20041129
  Serious: No
  Sender: FDA-Public Use
  Company Number: 200410079BWH

PATIENT
  Age: 43 Year
  Sex: Male
  Weight: 87.9978 kg

DRUGS (8)
  1. LEVITRA [Suspect]
     Indication: ERECTILE DYSFUNCTION
     Dosage: 10MG TOTAL DAILY ORAL
     Route: 048
     Dates: start: 20031229
  2. LEVITRA [Suspect]
     Indication: ERECTILE DYSFUNCTION
     Dosage: 10MG TOTAL DAILY ORAL
     Route: 048
     Dates: start: 20031229
  3. FORTOVASE [Concomitant]
  4. NORVIR [Concomitant]
  5. ZERIT [Concomitant]
  6. VIREAD [Concomitant]
  7. AMITRIPTYLINE HCL [Concomitant]
  8. VIAGRA [Concomitant]

REACTIONS (4)
  - ERECTILE DYSFUNCTION [None]
  - FLUSHING [None]
  - HEADACHE [None]
  - SPONTANEOUS PENILE ERECTION [None]
